FAERS Safety Report 18795030 (Version 1)
Quarter: 2021Q1

REPORT INFORMATION
  Report Type: Spontaneous
  Country: US (occurrence: US)
  Receive Date: 20210127
  Receipt Date: 20210127
  Transmission Date: 20210419
  Serious: Yes (Hospitalization)
  Sender: FDA-Public Use
  Company Number: None

PATIENT
  Age: 78 Year
  Sex: Male
  Weight: 83.4 kg

DRUGS (13)
  1. MORPHINE SULFATE (PF) [Concomitant]
  2. VINORELBINE [Suspect]
     Active Substance: VINORELBINE TARTRATE
     Indication: LUNG NEOPLASM MALIGNANT
     Dosage: ?          OTHER FREQUENCY:EVERY 14 DAYS;?
     Route: 042
     Dates: start: 20201015
  3. LANTUS SOLOSTAR [Concomitant]
     Active Substance: INSULIN GLARGINE
  4. AMLODIPINE BESYLATE. [Concomitant]
     Active Substance: AMLODIPINE BESYLATE
  5. METOPROLOL TARTRATE. [Concomitant]
     Active Substance: METOPROLOL TARTRATE
  6. GRANISETRON 1 MG/ML VIAL PF [Concomitant]
  7. DEXAMETHASONE 10 MG/ML VIAL [Concomitant]
  8. ASPIRIN. [Concomitant]
     Active Substance: ASPIRIN
  9. DIPHENHYDRAMINE 50 MG/ML VIAL [Concomitant]
  10. PANTOPRAZOLE SODIUM. [Concomitant]
     Active Substance: PANTOPRAZOLE SODIUM
  11. FINASTERIDE. [Concomitant]
     Active Substance: FINASTERIDE
  12. HUMALOG MIX 50/50 KWIKPEN [Concomitant]
  13. DEXTROSE?NACL [Concomitant]

REACTIONS (1)
  - Hospitalisation [None]
